FAERS Safety Report 5189469-5 (Version None)
Quarter: 2006Q4

REPORT INFORMATION
  Report Type: 
  Country: None (occurrence: None)
  Receive Date: 20061215
  Receipt Date: 20061205
  Transmission Date: 20070319
  Serious: Yes (Other)
  Sender: FDA-Public Use
  Company Number: 2006150353

PATIENT

DRUGS (3)
  1. ZOLOFT [Suspect]
  2. PAXIL [Suspect]
  3. PROZAC [Suspect]

REACTIONS (5)
  - ANTIDEPRESSANT DRUG LEVEL DECREASED [None]
  - CONDITION AGGRAVATED [None]
  - DEPRESSION [None]
  - MOVEMENT DISORDER [None]
  - PARKINSONISM [None]
